FAERS Safety Report 7226128-9 (Version None)
Quarter: 2011Q1

REPORT INFORMATION
  Report Type: 
  Country: None (occurrence: None)
  Receive Date: 20110114
  Receipt Date: 20110103
  Transmission Date: 20110831
  Serious: Yes (Hospitalization)
  Sender: FDA-Public Use
  Company Number: US-BIOGENIDEC-2010BI044261

PATIENT
  Age: 56 Year
  Sex: Female

DRUGS (6)
  1. TYSABRI [Suspect]
     Indication: MULTIPLE SCLEROSIS
     Route: 042
     Dates: start: 20100429
  2. EFFEXOR [Concomitant]
  3. ABILIFY [Concomitant]
  4. XANAX [Concomitant]
  5. PROVIGIL [Concomitant]
  6. LOVASTATIN [Concomitant]

REACTIONS (3)
  - SLEEP APNOEA SYNDROME [None]
  - MYOCARDIAL INFARCTION [None]
  - VERTIGO [None]
